FAERS Safety Report 9347764 (Version 4)
Quarter: 2013Q3

REPORT INFORMATION
  Report Type: Spontaneous
  Country: US (occurrence: US)
  Receive Date: 20130614
  Receipt Date: 20130927
  Transmission Date: 20140515
  Serious: No
  Sender: FDA-Public Use
  Company Number: US-PFIZER INC-2013175827

PATIENT
  Sex: Male

DRUGS (2)
  1. OXYCODONE HYDROCHLORIDE [Suspect]
     Indication: PAIN
     Dosage: 120 MG, UNK ((4)-30MG )
  2. OXYCODONE HYDROCHLORIDE [Suspect]
     Dosage: 25 MG, UNK ((5)- 5MG)

REACTIONS (1)
  - Drug ineffective [Unknown]
